FAERS Safety Report 24090340 (Version 1)
Quarter: 2024Q3

REPORT INFORMATION
  Report Type: Report from Study
  Country: US (occurrence: US)
  Receive Date: 20240715
  Receipt Date: 20240715
  Transmission Date: 20241017
  Serious: No
  Sender: TG THERAPEUTICS
  Company Number: US-TG THERAPEUTICS INC.-TGT003490

PATIENT
  Age: 37 Year
  Sex: Female
  Weight: 38.095 kg

DRUGS (5)
  1. UBLITUXIMAB [Suspect]
     Active Substance: UBLITUXIMAB
     Indication: Multiple sclerosis
     Dosage: 150 MILLIGRAM
     Route: 042
     Dates: start: 20240228, end: 20240228
  2. UBLITUXIMAB [Suspect]
     Active Substance: UBLITUXIMAB
     Dosage: 450 MILLIGRAM
     Route: 042
     Dates: start: 20240313, end: 20240313
  3. CLONAZEPAM [Concomitant]
     Active Substance: CLONAZEPAM
     Indication: Product used for unknown indication
     Dosage: 1 MILLIGRAM, QID
     Route: 048
  4. GABAPENTIN [Concomitant]
     Active Substance: GABAPENTIN
     Indication: Product used for unknown indication
     Dosage: 100 MILLIGRAM, TID
     Route: 048
  5. MODAFINIL [Concomitant]
     Active Substance: MODAFINIL
     Indication: Product used for unknown indication
     Dosage: 200 MILLIGRAM, QAM
     Route: 048

REACTIONS (2)
  - Infusion related reaction [Not Recovered/Not Resolved]
  - Urinary tract infection [Not Recovered/Not Resolved]

NARRATIVE: CASE EVENT DATE: 20240228
